FAERS Safety Report 10039010 (Version 5)
Quarter: 2014Q3

REPORT INFORMATION
  Report Type: Spontaneous
  Country: US (occurrence: US)
  Receive Date: 20140326
  Receipt Date: 20140718
  Transmission Date: 20150326
  Serious: Yes (Hospitalization, Other)
  Sender: FDA-Public Use
  Company Number: US-009507513-1110USA01789

PATIENT
  Sex: Female
  Weight: 65.76 kg

DRUGS (4)
  1. ALENDRONATE SODIUM. [Suspect]
     Active Substance: ALENDRONATE SODIUM
     Indication: OSTEOPOROSIS
     Dosage: 70 MG, QW
     Route: 048
     Dates: start: 2009, end: 2010
  2. FOSAMAX [Suspect]
     Active Substance: ALENDRONATE SODIUM
     Dosage: 70 MG, QW
     Route: 048
     Dates: start: 2008
  3. FOSAMAX [Suspect]
     Active Substance: ALENDRONATE SODIUM
     Indication: OSTEOPOROSIS
     Dosage: 70 MG, QW
     Route: 048
     Dates: end: 2005
  4. FOSAMAX PLUS D [Suspect]
     Active Substance: ALENDRONATE SODIUM\CHOLECALCIFEROL
     Indication: OSTEOPOROSIS
     Dosage: 70MG-2800 IU, QW
     Route: 048
     Dates: start: 2006, end: 2008

REACTIONS (65)
  - Vertebroplasty [Unknown]
  - Stress urinary incontinence [Not Recovered/Not Resolved]
  - Appendicectomy [Unknown]
  - Nausea [Unknown]
  - Abdominal discomfort [Unknown]
  - Intramedullary rod insertion [Recovering/Resolving]
  - Femur fracture [Unknown]
  - Spinal compression fracture [Unknown]
  - Hypercholesterolaemia [Not Recovered/Not Resolved]
  - Osteoarthritis [Unknown]
  - Vertebroplasty [Unknown]
  - Nausea [Recovering/Resolving]
  - Cataract operation [Unknown]
  - Vertebroplasty [Unknown]
  - Myocardial infarction [Unknown]
  - Wound complication [Unknown]
  - Diverticulum [Not Recovered/Not Resolved]
  - Procedural vomiting [Unknown]
  - Back pain [Not Recovered/Not Resolved]
  - Labile hypertension [Unknown]
  - Asthenia [Unknown]
  - Gastrooesophageal reflux disease [Not Recovered/Not Resolved]
  - Spinal fusion surgery [Unknown]
  - Spinal laminectomy [Unknown]
  - Femur fracture [Unknown]
  - Vertebroplasty [Unknown]
  - Carotid bruit [Unknown]
  - Urinary tract infection [Recovered/Resolved]
  - Laceration [Unknown]
  - Blood magnesium decreased [Unknown]
  - Constipation [Recovered/Resolved]
  - Intramedullary rod insertion [Unknown]
  - Cataract operation [Unknown]
  - Spinal compression fracture [Unknown]
  - Myocardial infarction [Unknown]
  - Angiopathy [Unknown]
  - Hypothyroidism [Not Recovered/Not Resolved]
  - Polycythaemia [Unknown]
  - Myeloproliferative disorder [Not Recovered/Not Resolved]
  - Hysterectomy [Unknown]
  - Intervertebral disc degeneration [Not Recovered/Not Resolved]
  - Depression [Not Recovered/Not Resolved]
  - Osteoarthritis [Unknown]
  - Vomiting [Recovering/Resolving]
  - Coronary artery bypass [Unknown]
  - Femur fracture [Recovering/Resolving]
  - Osteoarthritis [Unknown]
  - Cardiomegaly [Unknown]
  - Constipation [Unknown]
  - Cholecystectomy [Unknown]
  - Basal cell carcinoma [Not Recovered/Not Resolved]
  - Cardiac failure congestive [Unknown]
  - Skin neoplasm excision [Unknown]
  - Dizziness postural [Unknown]
  - Procedural nausea [Unknown]
  - Urinary tract infection [Unknown]
  - Diabetes mellitus inadequate control [Unknown]
  - Spinal compression fracture [Unknown]
  - Coronary artery disease [Not Recovered/Not Resolved]
  - Haematoma [Recovering/Resolving]
  - Anaemia [Not Recovered/Not Resolved]
  - Hyperthyroidism [Unknown]
  - Vascular calcification [Unknown]
  - Intervertebral disc degeneration [Unknown]
  - Rib fracture [Unknown]

NARRATIVE: CASE EVENT DATE: 2000
